FAERS Safety Report 4284764-6 (Version None)
Quarter: 2004Q1

REPORT INFORMATION
  Report Type: 
  Country: None (occurrence: None)
  Receive Date: 20040202
  Receipt Date: 20040120
  Transmission Date: 20041129
  Serious: Yes (Hospitalization)
  Sender: FDA-Public Use
  Company Number: 2004003492

PATIENT
  Age: 80 Year
  Sex: Male
  Weight: 71 kg

DRUGS (6)
  1. GEMFIBROZIL [Suspect]
     Indication: ILL-DEFINED DISORDER
     Dosage: (DAILY), ORAL
     Route: 048
     Dates: start: 19930101, end: 20030512
  2. NAFTIDROFURYL OXALATE (NAFTIDROFURYL OXALATE) [Suspect]
     Indication: ILL-DEFINED DISORDER
     Dosage: 400 MG (DAILY), ORAL
     Route: 048
     Dates: start: 19930101, end: 20030512
  3. ALLOPURINOL [Suspect]
     Indication: ILL-DEFINED DISORDER
     Dosage: 300 MG (DAILY), ORAL
     Route: 048
     Dates: start: 20030408, end: 20030422
  4. CIPROFLOXACIN HCL [Suspect]
     Indication: ILL-DEFINED DISORDER
     Dosage: (DAILY), ORAL
     Route: 048
     Dates: start: 20030509, end: 20030511
  5. DIOVAN HCT [Suspect]
     Indication: ILL-DEFINED DISORDER
     Dosage: (DAILY), ORAL
     Route: 048
     Dates: start: 20010101, end: 20030512
  6. TRAVOPROST (TRAVOPROST) [Suspect]
     Indication: ILL-DEFINED DISORDER
     Dosage: (DAILY), ORAL
     Route: 048
     Dates: start: 19950101, end: 20030509

REACTIONS (2)
  - STEVENS-JOHNSON SYNDROME [None]
  - TOXIC EPIDERMAL NECROLYSIS [None]
